FAERS Safety Report 8426996-9 (Version None)
Quarter: 2012Q2

REPORT INFORMATION
  Report Type: 
  Country: None (occurrence: None)
  Receive Date: 20120611
  Receipt Date: 20120606
  Transmission Date: 20120825
  Serious: No
  Sender: FDA-Public Use
  Company Number: AT-ROCHE-1069498

PATIENT
  Sex: Female
  Weight: 110 kg

DRUGS (8)
  1. ASPIRIN [Concomitant]
  2. ACTEMRA [Suspect]
     Indication: RHEUMATOID ARTHRITIS
     Route: 042
  3. MEXALEN [Concomitant]
  4. OLEOVIT [Concomitant]
  5. CYMBALTA [Concomitant]
  6. ARAVA [Concomitant]
  7. LASIX [Concomitant]
  8. ENBREL [Concomitant]
     Route: 058
     Dates: start: 20120401

REACTIONS (2)
  - HYPERSENSITIVITY [None]
  - ERYTHEMA [None]
